FAERS Safety Report 5625116-3 (Version None)
Quarter: 2008Q1

REPORT INFORMATION
  Report Type: 
  Country: None (occurrence: None)
  Receive Date: 20080213
  Receipt Date: 20070827
  Transmission Date: 20080703
  Serious: No
  Sender: FDA-Public Use
  Company Number: US-BOEHRINGER INGELHEIM GMBH, GERMANY-2007-BP-20014BP

PATIENT
  Sex: Female

DRUGS (4)
  1. MELOXICAM [Suspect]
  2. CITALOPRAM HYDROBROMIDE [Concomitant]
  3. TRAZODONE HCL [Concomitant]
  4. MILK OF MAGNESIA [Concomitant]

REACTIONS (1)
  - DRUG SCREEN POSITIVE [None]
